FAERS Safety Report 8367839-1 (Version None)
Quarter: 2012Q2

REPORT INFORMATION
  Report Type: 
  Country: None (occurrence: None)
  Receive Date: 20120517
  Receipt Date: 20110926
  Transmission Date: 20120825
  Serious: Yes (Other)
  Sender: FDA-Public Use
  Company Number: US-ASTRAZENECA-2011SE57894

PATIENT
  Age: 65 Year
  Sex: Female
  Weight: 96.2 kg

DRUGS (3)
  1. PAIN MEDICATION [Concomitant]
  2. NEXIUM [Suspect]
     Indication: DYSPEPSIA
     Route: 048
  3. HIGH BLOOD PRESSURE MEDICATION [Concomitant]
     Indication: HYPERTENSION

REACTIONS (6)
  - DYSPEPSIA [None]
  - DRUG DOSE OMISSION [None]
  - REGURGITATION [None]
  - OFF LABEL USE [None]
  - DIABETES MELLITUS [None]
  - ABASIA [None]
